FAERS Safety Report 12907051 (Version 2)
Quarter: 2016Q4

REPORT INFORMATION
  Report Type: Spontaneous
  Country: FR (occurrence: FR)
  Receive Date: 20161103
  Receipt Date: 20161114
  Transmission Date: 20170207
  Serious: Yes (Other)
  Sender: FDA-Public Use
  Company Number: FR-JNJFOC-20161026159

PATIENT
  Age: 85 Year
  Sex: Female

DRUGS (4)
  1. CARDENSIEL [Suspect]
     Active Substance: BISOPROLOL FUMARATE
     Indication: PRODUCT USED FOR UNKNOWN INDICATION
     Route: 065
  2. FELDENE [Concomitant]
     Active Substance: PIROXICAM
     Indication: SPINAL DISORDER
     Route: 065
     Dates: start: 201611
  3. SOTALOL. [Suspect]
     Active Substance: SOTALOL
     Indication: PRODUCT USED FOR UNKNOWN INDICATION
  4. XARELTO [Suspect]
     Active Substance: RIVAROXABAN
     Indication: PRODUCT USED FOR UNKNOWN INDICATION
     Route: 048
     Dates: start: 201611

REACTIONS (8)
  - Blood pressure increased [Unknown]
  - Vertigo [Recovered/Resolved]
  - Strabismus [Unknown]
  - Tachycardia [Recovered/Resolved]
  - Memory impairment [Unknown]
  - Head discomfort [Unknown]
  - Asphyxia [Unknown]
  - Feeling abnormal [Unknown]
